FAERS Safety Report 25515358 (Version 4)
Quarter: 2025Q3

REPORT INFORMATION
  Report Type: Spontaneous
  Country: EU (occurrence: EU)
  Receive Date: 20250704
  Receipt Date: 20250923
  Transmission Date: 20251020
  Serious: Yes (Congenital Anomaly, Other)
  Sender: CIPLA
  Company Number: EU-CIPLA (EU) LIMITED-2025DE07820

PATIENT

DRUGS (5)
  1. TENOFOVIR [Suspect]
     Active Substance: TENOFOVIR
     Route: 064
     Dates: start: 2024, end: 20250203
  2. DOVATO [Suspect]
     Active Substance: DOLUTEGRAVIR SODIUM\LAMIVUDINE
     Route: 064
     Dates: start: 2024, end: 20250203
  3. VEMLIDY [Suspect]
     Active Substance: TENOFOVIR ALAFENAMIDE FUMARATE
     Route: 064
     Dates: start: 2024, end: 20241107
  4. METHYLDOPA [Suspect]
     Active Substance: METHYLDOPA
     Route: 064
     Dates: start: 2024, end: 20250203
  5. NIFEDIPINE [Suspect]
     Active Substance: NIFEDIPINE
     Route: 064
     Dates: start: 2024, end: 20250203

REACTIONS (4)
  - Congenital renal disorder [Unknown]
  - Foetal exposure during pregnancy [Unknown]
  - Premature baby [Unknown]
  - Low birth weight baby [Unknown]

NARRATIVE: CASE EVENT DATE: 20240101
